FAERS Safety Report 11786327 (Version 1)
Quarter: 2015Q4

REPORT INFORMATION
  Report Type: Spontaneous
  Country: HK (occurrence: HK)
  Receive Date: 20151130
  Receipt Date: 20151130
  Transmission Date: 20160305
  Serious: Yes (Death, Hospitalization)
  Sender: FDA-Public Use
  Company Number: HK-JUBILANT CADISTA PHARMACEUTICALS-2015JUB00384

PATIENT
  Age: 61 Year
  Sex: Male

DRUGS (7)
  1. PREDNISONE. [Suspect]
     Active Substance: PREDNISONE
     Indication: ASTHMA
  2. OXYTETRACYCLINE [Concomitant]
     Active Substance: OXYTETRACYCLINE
  3. ^OTHER HERBAL MARKERS^ [Concomitant]
  4. MORPHINE [Suspect]
     Active Substance: MORPHINE
     Indication: ASTHMA
  5. CODEINE [Suspect]
     Active Substance: CODEINE
     Indication: ASTHMA
  6. CLENBUTEROL [Concomitant]
     Active Substance: CLENBUTEROL
  7. DIAZEPAM. [Concomitant]
     Active Substance: DIAZEPAM

REACTIONS (4)
  - Respiratory failure [Fatal]
  - Pulmonary tuberculosis [Fatal]
  - Pneumonia [Fatal]
  - Product contamination [Fatal]

NARRATIVE: CASE EVENT DATE: 2009
